FAERS Safety Report 5570221-3 (Version None)
Quarter: 2007Q4

REPORT INFORMATION
  Report Type: 
  Country: None (occurrence: None)
  Receive Date: 20071220
  Receipt Date: 20071208
  Transmission Date: 20080405
  Serious: Yes (Other)
  Sender: FDA-Public Use
  Company Number: US-PFIZER INC-2007104200

PATIENT
  Sex: Male
  Weight: 86.363 kg

DRUGS (6)
  1. DILANTIN [Suspect]
     Indication: EPILEPSY
  2. DILANTIN [Suspect]
  3. PHENYTOIN [Suspect]
     Indication: EPILEPSY
  4. ZOLOFT [Concomitant]
  5. CRESTOR [Concomitant]
  6. ZETIA [Concomitant]

REACTIONS (1)
  - DRUG LEVEL FLUCTUATING [None]
